FAERS Safety Report 9814915 (Version 2)
Quarter: 2014Q1

REPORT INFORMATION
  Report Type: Report from Study
  Country: DK (occurrence: DK)
  Receive Date: 20140113
  Receipt Date: 20140312
  Transmission Date: 20141002
  Serious: No
  Sender: FDA-Public Use
  Company Number: DK-RB-062618-14

PATIENT
  Age: 49 Year
  Sex: Male

DRUGS (5)
  1. BUPRENOTEX [Suspect]
     Indication: DRUG DEPENDENCE
     Dosage: DOSING DETAILS UNKNOWN. ON MEDICATION FOR 2 MONTHS AT THE TIME THE QUESTIONNAIRE WAS COMPLETED.
     Route: 065
  2. HEROIN [Suspect]
     Indication: PRODUCT USED FOR UNKNOWN INDICATION
     Dosage: INFORMATION UNKNOWN
     Route: 065
  3. COCAINE [Suspect]
     Indication: PRODUCT USED FOR UNKNOWN INDICATION
     Dosage: INFORMATION UNKNOWN
     Route: 065
  4. MARIJUANA [Suspect]
     Indication: PRODUCT USED FOR UNKNOWN INDICATION
     Dosage: INFORMATION UNKNOWN
     Route: 065
  5. BENZODIAZEPINES [Suspect]
     Indication: PRODUCT USED FOR UNKNOWN INDICATION
     Dosage: INFORMATION UNKNOWN
     Route: 065

REACTIONS (2)
  - Intentional drug misuse [Unknown]
  - Drug abuse [Unknown]
